FAERS Safety Report 6788559-0 (Version None)
Quarter: 2010Q2

REPORT INFORMATION
  Report Type: 
  Country: None (occurrence: None)
  Receive Date: 20100623
  Receipt Date: 20080528
  Transmission Date: 20101027
  Serious: No
  Sender: FDA-Public Use
  Company Number: US-PFIZER INC-2008019567

PATIENT
  Sex: Female
  Weight: 82.55 kg

DRUGS (3)
  1. GEODON [Suspect]
     Indication: SCHIZOAFFECTIVE DISORDER
  2. ZYPREXA [Concomitant]
  3. XANAX [Concomitant]

REACTIONS (7)
  - ASTHENIA [None]
  - DIZZINESS [None]
  - DYSARTHRIA [None]
  - FREQUENT BOWEL MOVEMENTS [None]
  - NAUSEA [None]
  - SEDATION [None]
  - VOMITING [None]
